FAERS Safety Report 7290282-3 (Version None)
Quarter: 2011Q1

REPORT INFORMATION
  Report Type: 
  Country: None (occurrence: None)
  Receive Date: 20110214
  Receipt Date: 20110203
  Transmission Date: 20110831
  Serious: Yes (Other)
  Sender: FDA-Public Use
  Company Number: ES-SANOFI-AVENTIS-2011SA003970

PATIENT
  Age: 71 Year
  Sex: Male

DRUGS (9)
  1. PANTOPRAZOLE [Concomitant]
     Dates: start: 20100806
  2. INSPRA [Suspect]
     Indication: HYPERTENSION
     Route: 048
     Dates: start: 20100806, end: 20100919
  3. CARDYL [Concomitant]
     Dates: start: 20100714
  4. METFORMIN HCL [Suspect]
     Indication: DIABETES MELLITUS
     Route: 048
     Dates: start: 20100806, end: 20100919
  5. SEGURIL [Suspect]
     Indication: HYPERTENSION
     Route: 048
     Dates: start: 20100714, end: 20100919
  6. ENALAPRIL [Suspect]
     Indication: HYPERTENSION
     Route: 048
     Dates: start: 20100807, end: 20100919
  7. CARVEDILOL [Concomitant]
     Indication: CORONARY ARTERY DISEASE
     Dates: start: 20100907
  8. KETOISDIN [Concomitant]
     Dates: start: 20100824
  9. ADIRO [Suspect]
     Indication: CARDIOVASCULAR EVENT PROPHYLAXIS
     Route: 048
     Dates: start: 20100714, end: 20100919

REACTIONS (2)
  - RENAL TUBULAR NECROSIS [None]
  - LACTIC ACIDOSIS [None]
